FAERS Safety Report 5390369-6 (Version None)
Quarter: 2007Q3

REPORT INFORMATION
  Report Type: 
  Country: None (occurrence: None)
  Receive Date: 20070718
  Receipt Date: 20070709
  Transmission Date: 20080115
  Serious: No
  Sender: FDA-Public Use
  Company Number: JP-PFIZER INC-2007053800

PATIENT
  Age: 33 Year
  Sex: Female

DRUGS (8)
  1. HALCION [Suspect]
     Indication: INSOMNIA
     Route: 048
  2. ROHYPNOL [Suspect]
     Route: 048
  3. DORAL [Suspect]
     Route: 048
  4. RESLIN [Suspect]
     Route: 048
  5. RIVOTRIL [Suspect]
     Route: 048
  6. GASMOTIN [Suspect]
     Route: 048
  7. DEPAKENE [Suspect]
     Route: 048
  8. DEPROMEL [Suspect]
     Route: 048

REACTIONS (1)
  - INTENTIONAL OVERDOSE [None]
